FAERS Safety Report 5658708-6 (Version None)
Quarter: 2008Q1

REPORT INFORMATION
  Report Type: 
  Country: None (occurrence: None)
  Receive Date: 20080310
  Receipt Date: 20070410
  Transmission Date: 20080703
  Serious: No
  Sender: FDA-Public Use
  Company Number: US-BAYER-200711087BCC

PATIENT
  Age: 23 Year
  Sex: Female
  Weight: 141 kg

DRUGS (2)
  1. ALEVE [Suspect]
     Indication: ADNEXA UTERI PAIN
     Dosage: TOTAL DAILY DOSE: 660 MG  UNIT DOSE: 220 MG
     Route: 048
     Dates: start: 20070409
  2. ALEVE [Suspect]
     Dosage: TOTAL DAILY DOSE: 1980 MG  UNIT DOSE: 220 MG
     Route: 048
     Dates: start: 20070410

REACTIONS (2)
  - DRUG EFFECT DECREASED [None]
  - PAIN [None]
